FAERS Safety Report 14527797 (Version 5)
Quarter: 2019Q3

REPORT INFORMATION
  Report Type: Spontaneous
  Country: US (occurrence: US)
  Receive Date: 20180213
  Receipt Date: 20190813
  Transmission Date: 20191004
  Serious: No
  Sender: FDA-Public Use
  Company Number: US-ACTELION-A-NJ2018-167423

PATIENT
  Age: 69 Year
  Sex: Female

DRUGS (2)
  1. INSTAFLEX ADVANCED [Concomitant]
  2. OPSUMIT [Suspect]
     Active Substance: MACITENTAN
     Indication: PULMONARY ARTERIAL HYPERTENSION
     Dosage: 10 MG, QD
     Route: 048
     Dates: start: 20140721

REACTIONS (5)
  - Cough [Unknown]
  - Cellulitis [Unknown]
  - Arthritis [Not Recovered/Not Resolved]
  - Gastrointestinal disorder [Unknown]
  - Nasal congestion [Unknown]

NARRATIVE: CASE EVENT DATE: 201705
